FAERS Safety Report 10306368 (Version 2)
Quarter: 2014Q3

REPORT INFORMATION
  Report Type: Spontaneous
  Country: BR (occurrence: BR)
  Receive Date: 20140715
  Receipt Date: 20140724
  Transmission Date: 20150326
  Serious: Yes (Other)
  Sender: FDA-Public Use
  Company Number: BR-009507513-1407BRA006149

PATIENT
  Sex: Male

DRUGS (3)
  1. INTERFERON NOS [Concomitant]
     Active Substance: INTERFERON
     Indication: HEPATITIS C
     Dosage: UNK, UNKNOWN
     Route: 065
     Dates: start: 20140316
  2. VICTRELIS [Suspect]
     Active Substance: BOCEPREVIR
     Indication: HEPATITIS C
     Dosage: UNK, UNKNOWN
     Route: 048
     Dates: start: 20140316
  3. RIBAVIRIN. [Suspect]
     Active Substance: RIBAVIRIN
     Indication: HEPATITIS C
     Dosage: UNK, UNKNOWN
     Route: 048
     Dates: start: 20140316

REACTIONS (5)
  - Anaemia [Recovered/Resolved]
  - Fatigue [Recovered/Resolved]
  - Syncope [Recovered/Resolved]
  - Convulsion [Recovered/Resolved]
  - Platelet count decreased [Recovered/Resolved]
